FAERS Safety Report 8195826-5 (Version None)
Quarter: 2012Q1

REPORT INFORMATION
  Report Type: 
  Country: None (occurrence: None)
  Receive Date: 20120308
  Receipt Date: 20120306
  Transmission Date: 20120608
  Serious: Yes (Other)
  Sender: FDA-Public Use
  Company Number: US-PFIZER INC-2012042522

PATIENT
  Sex: Male
  Weight: 107 kg

DRUGS (3)
  1. NEURONTIN [Suspect]
     Indication: PAIN
     Dosage: UNK
     Dates: start: 20110301, end: 20110301
  2. LYRICA [Suspect]
     Indication: PAIN
     Dosage: 50 MG, 3X/DAY
     Route: 048
     Dates: start: 20111103
  3. COZAAR [Concomitant]
     Indication: HYPERTENSION
     Dosage: UNK

REACTIONS (4)
  - PARAESTHESIA [None]
  - MALAISE [None]
  - PAIN [None]
  - ABASIA [None]
